FAERS Safety Report 4866299-2 (Version None)
Quarter: 2005Q4

REPORT INFORMATION
  Report Type: 
  Country: None (occurrence: None)
  Receive Date: 20051221
  Receipt Date: 20051212
  Transmission Date: 20060501
  Serious: Yes (Disabling)
  Sender: FDA-Public Use
  Company Number: 2005168516

PATIENT
  Sex: Female
  Weight: 91.173 kg

DRUGS (9)
  1. NORVASC [Suspect]
     Indication: HYPERTENSION
     Dosage: 10 MG (10 MG, 1 IN 1 D), ORAL
     Route: 048
     Dates: start: 19990101
  2. ZYRTEC [Concomitant]
  3. ZESTORETIC [Concomitant]
  4. CATAPRES [Concomitant]
  5. PREVACID [Concomitant]
  6. ADVAIR DISKUS 100/50 [Concomitant]
  7. ALBUTEROL [Concomitant]
  8. METHOTREXATE [Concomitant]
  9. DARVOCET (DEXATROPROPOXYPHENE NAPSILATE, PARACETAMOL) [Concomitant]

REACTIONS (1)
  - RHEUMATOID ARTHRITIS [None]
